FAERS Safety Report 8401291-2 (Version None)
Quarter: 2012Q2

REPORT INFORMATION
  Report Type: 
  Country: None (occurrence: None)
  Receive Date: 20120530
  Receipt Date: 20120530
  Transmission Date: 20120825
  Serious: Yes (Hospitalization)
  Sender: FDA-Public Use
  Company Number: None

PATIENT
  Age: 66 Year
  Sex: Male

DRUGS (1)
  1. CLOFARABINE [Suspect]
     Indication: ACUTE MYELOID LEUKAEMIA
     Dosage: 3MG QD DAYS 1-21 PO
     Route: 048
     Dates: start: 20120418, end: 20120508

REACTIONS (2)
  - SEPSIS [None]
  - FEBRILE NEUTROPENIA [None]
